FAERS Safety Report 9228275 (Version 1)
Quarter: 2013Q2

REPORT INFORMATION
  Report Type: Spontaneous
  Country: US (occurrence: None)
  Receive Date: 20130411
  Receipt Date: 20130411
  Transmission Date: 20140414
  Serious: Yes (Other)
  Sender: FDA-Public Use
  Company Number: None

PATIENT
  Age: 54 Year
  Sex: Male
  Weight: 66.23 kg

DRUGS (1)
  1. IMIPENEM + CILASTATIN [Suspect]
     Indication: LUNG ABSCESS
     Dosage: 500MG  Q12  IV DRIP
     Route: 041
     Dates: start: 20121020, end: 20130322

REACTIONS (5)
  - Rash pustular [None]
  - Granuloma skin [None]
  - Dermatitis [None]
  - Nocardia test positive [None]
  - Product odour abnormal [None]
